FAERS Safety Report 7249806-4 (Version None)
Quarter: 2011Q1

REPORT INFORMATION
  Report Type: 
  Country: None (occurrence: None)
  Receive Date: 20110128
  Receipt Date: 20100429
  Transmission Date: 20110831
  Serious: No
  Sender: FDA-Public Use
  Company Number: A0855591A

PATIENT
  Age: 75 Year
  Sex: Female

DRUGS (3)
  1. WELLBUTRIN [Suspect]
     Route: 048
  2. NEURONTIN [Concomitant]
     Dates: start: 20080101
  3. ARIMIDEX [Concomitant]
     Dates: start: 20070101

REACTIONS (1)
  - HAIR COLOUR CHANGES [None]
